FAERS Safety Report 5407501-8 (Version None)
Quarter: 2007Q3

REPORT INFORMATION
  Report Type: 
  Country: None (occurrence: None)
  Receive Date: 20070713
  Receipt Date: 20070423
  Transmission Date: 20080115
  Serious: No
  Sender: FDA-Public Use
  Company Number: US-JNJFOC-20060105322

PATIENT
  Age: 25 Year
  Sex: Female
  Weight: 54.4316 kg

DRUGS (3)
  1. ORTHO EVRA [Suspect]
     Indication: CONTRACEPTION
     Dosage: TRANSDERMAL
     Route: 062
     Dates: start: 20031001, end: 20031001
  2. PEPCID [Concomitant]
  3. DURADRIN (ISOCOM) [Concomitant]

REACTIONS (4)
  - DIZZINESS [None]
  - HYPOAESTHESIA [None]
  - TREMOR [None]
  - VISION BLURRED [None]
